FAERS Safety Report 8469308-7 (Version None)
Quarter: 2012Q2

REPORT INFORMATION
  Report Type: 
  Country: None (occurrence: None)
  Receive Date: 20120626
  Receipt Date: 20120621
  Transmission Date: 20120825
  Serious: Yes (Other)
  Sender: FDA-Public Use
  Company Number: PHHY2012CA045207

PATIENT
  Sex: Male

DRUGS (1)
  1. SANDOSTATIN LAR [Suspect]
     Indication: ANGIODYSPLASIA
     Dosage: 20 MG, QMO
     Route: 030
     Dates: start: 20120329

REACTIONS (5)
  - MUSCLE SPASMS [None]
  - HEART RATE DECREASED [None]
  - INJECTION SITE PAIN [None]
  - PAIN IN EXTREMITY [None]
  - BLOOD PRESSURE DIASTOLIC DECREASED [None]
